FAERS Safety Report 6176558-1 (Version None)
Quarter: 2009Q2

REPORT INFORMATION
  Report Type: 
  Country: None (occurrence: None)
  Receive Date: 20090501
  Receipt Date: 20090424
  Transmission Date: 20091009
  Serious: Yes (Death, Hospitalization)
  Sender: FDA-Public Use
  Company Number: CA-ABBOTT-08P-028-0434767-00

PATIENT
  Sex: Male
  Weight: 45.4 kg

DRUGS (9)
  1. LUPRON DEPOT [Suspect]
     Indication: PROSTATE CANCER
     Route: 030
     Dates: start: 20010216, end: 20081109
  2. CIPRALEX [Concomitant]
     Indication: DRUG USE FOR UNKNOWN INDICATION
  3. VENTOLIN [Concomitant]
     Indication: EMPHYSEMA
     Route: 055
  4. ATROVENT [Concomitant]
     Indication: EMPHYSEMA
     Route: 055
  5. ADVIL ALLERGY SINUS [Concomitant]
     Indication: PAIN
     Route: 048
  6. NAPROXEN [Concomitant]
     Indication: DRUG USE FOR UNKNOWN INDICATION
     Route: 048
     Dates: start: 20070401
  7. SPIRIVA [Concomitant]
     Indication: DRUG USE FOR UNKNOWN INDICATION
  8. PREDNISONE [Concomitant]
     Indication: DRUG USE FOR UNKNOWN INDICATION
  9. OXYGEN [Concomitant]
     Indication: DRUG USE FOR UNKNOWN INDICATION
     Dosage: CONTINUOUS
     Dates: start: 20080201

REACTIONS (3)
  - CHEST PAIN [None]
  - DYSPNOEA [None]
  - EMPHYSEMA [None]
